FAERS Safety Report 9452987 (Version 1)
Quarter: 2013Q3

REPORT INFORMATION
  Report Type: Spontaneous
  Country: NL (occurrence: NL)
  Receive Date: 20130812
  Receipt Date: 20130812
  Transmission Date: 20140515
  Serious: Yes (Other)
  Sender: FDA-Public Use
  Company Number: NL-ROCHE-1259627

PATIENT
  Sex: Male

DRUGS (7)
  1. ZELBORAF [Suspect]
     Indication: MALIGNANT MELANOMA
     Route: 048
     Dates: start: 20130626
  2. ZELBORAF [Suspect]
     Route: 048
     Dates: start: 20130705
  3. PANTOPRAZOLE [Concomitant]
     Route: 065
     Dates: end: 201308
  4. PERINDOPRIL [Concomitant]
     Route: 065
     Dates: end: 201308
  5. CODEINE [Concomitant]
     Route: 065
     Dates: end: 201308
  6. METFORMIN [Concomitant]
     Route: 065
  7. CARBASALATE CALCIUM [Concomitant]
     Route: 065

REACTIONS (1)
  - Nephrotic syndrome [Recovering/Resolving]
